FAERS Safety Report 7819626-8 (Version None)
Quarter: 2011Q4

REPORT INFORMATION
  Report Type: 
  Country: None (occurrence: None)
  Receive Date: 20111018
  Receipt Date: 20111018
  Transmission Date: 20120403
  Serious: Yes (Other)
  Sender: FDA-Public Use
  Company Number: None

PATIENT
  Sex: Female
  Weight: 68.492 kg

DRUGS (1)
  1. MIRENA [Suspect]
     Indication: MENORRHAGIA
     Route: 067
     Dates: start: 20110603, end: 20111017

REACTIONS (17)
  - URTICARIA [None]
  - METRORRHAGIA [None]
  - ACNE CYSTIC [None]
  - MOOD SWINGS [None]
  - FATIGUE [None]
  - FEELING ABNORMAL [None]
  - ARTHRALGIA [None]
  - WEIGHT INCREASED [None]
  - MEMORY IMPAIRMENT [None]
  - ASTHENIA [None]
  - IRRITABILITY [None]
  - DEPRESSION [None]
  - ABDOMINAL DISTENSION [None]
  - LIBIDO DECREASED [None]
  - ABDOMINAL PAIN LOWER [None]
  - HYPOAESTHESIA [None]
  - ALOPECIA [None]
